FAERS Safety Report 10570544 (Version 1)
Quarter: 2014Q4

REPORT INFORMATION
  Report Type: Spontaneous
  Country: US (occurrence: US)
  Receive Date: 20141107
  Receipt Date: 20141107
  Transmission Date: 20150529
  Serious: No
  Sender: FDA-Public Use
  Company Number: US-TEVA-497208USA

PATIENT
  Sex: Female

DRUGS (1)
  1. OXALIPLATIN INJECTION 50MG/10 ML+100MG/20ML [Suspect]
     Active Substance: OXALIPLATIN
     Dosage: 5MG/ML

REACTIONS (3)
  - Speech disorder [Unknown]
  - Drug administration error [Unknown]
  - Photopsia [Unknown]
